FAERS Safety Report 14530828 (Version 25)
Quarter: 2019Q2

REPORT INFORMATION
  Report Type: Report from Study
  Country: IL (occurrence: IL)
  Receive Date: 20180214
  Receipt Date: 20190625
  Transmission Date: 20190711
  Serious: Yes (Hospitalization)
  Sender: FDA-Public Use
  Company Number: IL-PFIZER INC-2018062668

PATIENT
  Age: 56 Year
  Sex: Male

DRUGS (5)
  1. SUTENT [Suspect]
     Active Substance: SUNITINIB MALATE
     Dosage: 37.5 MG, DAILY
     Route: 048
     Dates: start: 20180722, end: 20180822
  2. SUTENT [Suspect]
     Active Substance: SUNITINIB MALATE
     Dosage: 37.5 MG, DAILY (BEGINNING OF THE CYCLE WITHOUT A BREAK)
     Route: 048
     Dates: end: 20180627
  3. SUTENT [Suspect]
     Active Substance: SUNITINIB MALATE
     Indication: RENAL CELL CARCINOMA
     Dosage: 50 MG, CYCLIC (DAILY, 4 WEEKS ON/2 WEEKS OFF)
     Route: 048
     Dates: start: 20171019
  4. SUTENT [Suspect]
     Active Substance: SUNITINIB MALATE
     Dosage: 37.5 MG, CYCLIC (DAILY, 2 WEEKS ON/1 WEEK OFF)
     Route: 048
     Dates: start: 201801
  5. SUTENT [Suspect]
     Active Substance: SUNITINIB MALATE
     Dosage: 25 MG, DAILY
     Route: 048
     Dates: start: 20180822, end: 20190501

REACTIONS (20)
  - Weight increased [Not Recovered/Not Resolved]
  - Mouth swelling [Recovered/Resolved]
  - Heart rate increased [Not Recovered/Not Resolved]
  - Mouth haemorrhage [Not Recovered/Not Resolved]
  - Vomiting [Recovered/Resolved]
  - Yellow skin [Recovered/Resolved]
  - Constipation [Recovered/Resolved]
  - Oral pain [Recovered/Resolved]
  - Nausea [Not Recovered/Not Resolved]
  - Gingival bleeding [Recovered/Resolved]
  - Gingival recession [Not Recovered/Not Resolved]
  - Dehydration [Unknown]
  - Decreased appetite [Recovering/Resolving]
  - Periorbital oedema [Not Recovered/Not Resolved]
  - Hypertension [Not Recovered/Not Resolved]
  - Taste disorder [Not Recovered/Not Resolved]
  - Stomatitis [Recovered/Resolved]
  - Asthenia [Not Recovered/Not Resolved]
  - Diarrhoea [Recovered/Resolved]
  - Off label use [Unknown]

NARRATIVE: CASE EVENT DATE: 2018
